FAERS Safety Report 6360823-9 (Version None)
Quarter: 2009Q3

REPORT INFORMATION
  Report Type: 
  Country: None (occurrence: None)
  Receive Date: 20090915
  Receipt Date: 20090915
  Transmission Date: 20100115
  Serious: No
  Sender: FDA-Public Use
  Company Number: None

PATIENT
  Age: 50 Year
  Sex: Female
  Weight: 544.3164 kg

DRUGS (1)
  1. LATISSE [Suspect]
     Indication: MADAROSIS
     Dosage: 1 DROP PER UPPER EYELID ONCE A DAY TOP
     Route: 061
     Dates: start: 20090910, end: 20090911

REACTIONS (2)
  - HEADACHE [None]
  - VISUAL IMPAIRMENT [None]
